FAERS Safety Report 21099434 (Version 2)
Quarter: 2022Q3

REPORT INFORMATION
  Report Type: Spontaneous
  Country: US (occurrence: US)
  Receive Date: 20220719
  Receipt Date: 20220826
  Transmission Date: 20221027
  Serious: Yes (Other)
  Sender: FDA-Public Use
  Company Number: US-PFIZER INC-202200966597

PATIENT
  Age: 67 Year
  Sex: Male
  Weight: 83.91 kg

DRUGS (1)
  1. PROPOFOL [Suspect]
     Active Substance: PROPOFOL
     Dosage: UNK
     Route: 042
     Dates: start: 20220620

REACTIONS (6)
  - Myocardial necrosis marker increased [Recovered/Resolved]
  - Cardiac disorder [Unknown]
  - Limb mass [Not Recovered/Not Resolved]
  - Pain in extremity [Recovering/Resolving]
  - Gait inability [Unknown]
  - Peripheral swelling [Unknown]

NARRATIVE: CASE EVENT DATE: 20220620
